FAERS Safety Report 6354591-4 (Version None)
Quarter: 2009Q3

REPORT INFORMATION
  Report Type: 
  Country: None (occurrence: None)
  Receive Date: 20090914
  Receipt Date: 20090904
  Transmission Date: 20100115
  Serious: Yes (Hospitalization)
  Sender: FDA-Public Use
  Company Number: GB-PFIZER INC-2009264753

PATIENT
  Age: 32 Year

DRUGS (1)
  1. DEPO-PROVERA [Suspect]
     Indication: CONTRACEPTION
     Dosage: UNK

REACTIONS (3)
  - ENDOMETRIAL HYPERTROPHY [None]
  - OVARIAN CYST [None]
  - VAGINAL HAEMORRHAGE [None]
